FAERS Safety Report 18310049 (Version 1)
Quarter: 2020Q3

REPORT INFORMATION
  Report Type: Spontaneous
  Country: DE (occurrence: DE)
  Receive Date: 20200925
  Receipt Date: 20200925
  Transmission Date: 20201103
  Serious: Yes (Hospitalization)
  Sender: FDA-Public Use
  Company Number: DE-DRREDDYS-GER/GER/20/0127073

PATIENT
  Age: 85 Year
  Sex: Female
  Weight: 75.6 kg

DRUGS (8)
  1. ADENURIC 80MG [Suspect]
     Active Substance: FEBUXOSTAT
     Indication: PRODUCT USED FOR UNKNOWN INDICATION
     Dosage: 80 MG, 0?0?0?1, TABLETTEN
     Route: 048
  2. COLECALCIFEROL (VITAMIN D) [Concomitant]
     Indication: PRODUCT USED FOR UNKNOWN INDICATION
     Dosage: 2000 IE, 0?1?0?0, KAPSELN
     Route: 048
  3. TORASEMID [Suspect]
     Active Substance: TORSEMIDE
     Indication: PRODUCT USED FOR UNKNOWN INDICATION
     Dosage: 5 MG, 0?1?0?0, TABLETTEN
     Route: 048
  4. SELENASE 300 RP [Concomitant]
     Indication: PRODUCT USED FOR UNKNOWN INDICATION
     Dosage: 300 MG, 1?0?0?0, TABLETTEN
     Route: 048
  5. METAMIZOL [Suspect]
     Active Substance: METAMIZOLE SODIUM
     Indication: PRODUCT USED FOR UNKNOWN INDICATION
     Dosage: 500 MG, BEI BEDARF, TABLETTEN
     Route: 048
  6. ACETYLSALICYLS?URE [Concomitant]
     Active Substance: ASPIRIN
     Indication: PRODUCT USED FOR UNKNOWN INDICATION
     Dosage: 100 MG, 0?1?0?0, TABLETTEN
     Route: 048
  7. WOBENZYM [Concomitant]
     Indication: PRODUCT USED FOR UNKNOWN INDICATION
     Dosage: NK MG, 2?2?2?0
     Route: 048
  8. METOPROLOL. [Suspect]
     Active Substance: METOPROLOL
     Indication: PRODUCT USED FOR UNKNOWN INDICATION
     Dosage: 47.5 MG, 1?0?1?0, TABLETTEN
     Route: 048

REACTIONS (2)
  - Fall [Unknown]
  - Syncope [Unknown]
